FAERS Safety Report 21707822 (Version 1)
Quarter: 2022Q4

REPORT INFORMATION
  Report Type: Spontaneous
  Country: US (occurrence: US)
  Receive Date: 20221209
  Receipt Date: 20221209
  Transmission Date: 20230112
  Serious: No
  Sender: FDA-Public Use
  Company Number: US-PFIZER INC-PV202200119500

PATIENT
  Age: 80 Year
  Sex: Female

DRUGS (2)
  1. BRAFTOVI [Suspect]
     Active Substance: ENCORAFENIB
     Dosage: 6 DF, DAILY (TAKE 6 CAPSULE(S) BY MOUTH EVERY DAY)
     Route: 048
  2. MEKTOVI [Suspect]
     Active Substance: BINIMETINIB
     Dosage: 3 DF, 2X/DAY (TAKE 3 TABLETS BY MOUTH TWICE A DAY)
     Route: 048

REACTIONS (1)
  - Neoplasm progression [Unknown]
